FAERS Safety Report 8273392-3 (Version None)
Quarter: 2012Q2

REPORT INFORMATION
  Report Type: 
  Country: None (occurrence: None)
  Receive Date: 20120411
  Receipt Date: 20120405
  Transmission Date: 20120825
  Serious: Yes (Death, Hospitalization, Other)
  Sender: FDA-Public Use
  Company Number: PHHY2010JP37832

PATIENT
  Sex: Female

DRUGS (7)
  1. TASIGNA [Suspect]
     Dosage: 400 MG, TWICE IN A WEEK
     Route: 048
     Dates: start: 20100411, end: 20100418
  2. DESMOPRESSIN ACETATE [Concomitant]
     Dosage: 20 UG, UNK
     Dates: start: 19980501, end: 20100505
  3. OMEPRAZOLE [Concomitant]
     Dosage: 20 MG, UNK
     Route: 048
     Dates: start: 20081001, end: 20100505
  4. LENDORMIN [Concomitant]
     Dosage: 0.5 MG, UNK
     Route: 048
     Dates: start: 20081001, end: 20100505
  5. TASIGNA [Suspect]
     Dosage: 400 MG,TWICE IN A WEEK
     Route: 048
     Dates: start: 20100426, end: 20100505
  6. TASIGNA [Suspect]
     Indication: CHRONIC MYELOID LEUKAEMIA TRANSFORMATION
     Dosage: 400 MG, DAILY
     Route: 048
     Dates: start: 20100331, end: 20100404
  7. TASIGNA [Suspect]
     Dosage: 400 MG, TWICE EVERY OTHER DAY
     Route: 048
     Dates: start: 20100419, end: 20100425

REACTIONS (6)
  - NEOPLASM MALIGNANT [None]
  - CELLULITIS [None]
  - WHITE BLOOD CELL COUNT DECREASED [None]
  - PLATELET COUNT DECREASED [None]
  - DRUG INEFFECTIVE [None]
  - CHRONIC MYELOID LEUKAEMIA [None]
